FAERS Safety Report 15518083 (Version 1)
Quarter: 2018Q4

REPORT INFORMATION
  Report Type: Spontaneous
  Country: US (occurrence: US)
  Receive Date: 20181018
  Receipt Date: 20181018
  Transmission Date: 20190205
  Serious: Yes (Hospitalization, Disabling)
  Sender: FDA-Public Use
  Company Number: None

PATIENT
  Age: 46 Year
  Sex: Female
  Weight: 79.65 kg

DRUGS (4)
  1. XANAX [Concomitant]
     Active Substance: ALPRAZOLAM
  2. COPPER [Concomitant]
     Active Substance: COPPER
  3. GABAPETIN [Concomitant]
     Active Substance: GABAPENTIN
  4. BOTOX [Suspect]
     Active Substance: ONABOTULINUMTOXINA
     Indication: SKIN WRINKLING
     Dosage: ?          QUANTITY:29 INJECTION(S);?
     Route: 030
     Dates: start: 20180417, end: 20180417

REACTIONS (14)
  - Dizziness [None]
  - Fatigue [None]
  - Feeling abnormal [None]
  - Heart rate abnormal [None]
  - Head discomfort [None]
  - Dysphemia [None]
  - Dyspnoea [None]
  - Emotional poverty [None]
  - Cognitive disorder [None]
  - Decreased appetite [None]
  - Tremor [None]
  - Dyspepsia [None]
  - Visual impairment [None]
  - Speech disorder [None]

NARRATIVE: CASE EVENT DATE: 20180417
